FAERS Safety Report 7110296-3 (Version None)
Quarter: 2010Q4

REPORT INFORMATION
  Report Type: 
  Country: None (occurrence: None)
  Receive Date: 20101117
  Receipt Date: 20101117
  Transmission Date: 20110411
  Serious: No
  Sender: FDA-Public Use
  Company Number: None

PATIENT
  Age: 79 Year
  Sex: Female
  Weight: 78.4723 kg

DRUGS (1)
  1. LATISSE [Suspect]
     Dosage: APPLY ONE A NIGHT ON UPPER EYELID WITH SMALL BRUSH
     Dates: start: 20100308

REACTIONS (3)
  - LACRIMATION INCREASED [None]
  - OCULAR HYPERAEMIA [None]
  - SKIN DISCOLOURATION [None]
